FAERS Safety Report 5266967-7 (Version None)
Quarter: 2007Q1

REPORT INFORMATION
  Report Type: 
  Country: None (occurrence: None)
  Receive Date: 20070316
  Receipt Date: 20070313
  Transmission Date: 20070707
  Serious: Yes (Death, Hospitalization)
  Sender: FDA-Public Use
  Company Number: US-BAYER-200710742BWH

PATIENT
  Age: 75 Year
  Sex: Male
  Weight: 76 kg

DRUGS (9)
  1. SORAFENIB [Suspect]
     Indication: NON-SMALL CELL LUNG CANCER
     Dosage: TOTAL DAILY DOSE: 800 MG  UNIT DOSE: 200 MG
     Route: 048
     Dates: start: 20070212, end: 20070223
  2. COLACE [Concomitant]
  3. DILAUDID [Concomitant]
     Dosage: TOTAL DAILY DOSE: 12 MG
  4. FENTANYL [Concomitant]
     Route: 003
  5. LANTUS [Concomitant]
     Route: 058
  6. PANCREASE [Concomitant]
  7. LACTULOSE [Concomitant]
  8. LISINOPRIL [Concomitant]
  9. SENOKOT [Concomitant]

REACTIONS (4)
  - FATIGUE [None]
  - MALIGNANT NEOPLASM PROGRESSION [None]
  - NON-SMALL CELL LUNG CANCER STAGE IIIB [None]
  - RENAL FAILURE [None]
